FAERS Safety Report 19961231 (Version 3)
Quarter: 2022Q2

REPORT INFORMATION
  Report Type: Report from Study
  Country: MX (occurrence: MX)
  Receive Date: 20211016
  Receipt Date: 20220621
  Transmission Date: 20220721
  Serious: Yes (Other)
  Sender: FDA-Public Use
  Company Number: MX-NOVARTISPH-NVSC2021MX223168

PATIENT
  Sex: Male
  Weight: 70 kg

DRUGS (3)
  1. DIOVAN [Suspect]
     Active Substance: VALSARTAN
     Indication: Hypertension
     Dosage: 1 DOSAGE FORM, QD (160 MG) (STARTED 10 YEARS AGO AND STOPPED 8 YEARS AGO)
     Route: 048
  2. DIOVAN [Suspect]
     Active Substance: VALSARTAN
     Dosage: 1 DOSAGE FORM, BID (80 MG) (STARTED APPROXIMATELY 8 YEAR AGO)
     Route: 048
  3. DIOVAN [Suspect]
     Active Substance: VALSARTAN
     Dosage: 2 DOSAGE FORM, QD (80 MG)
     Route: 048
     Dates: start: 2005

REACTIONS (14)
  - Carotid artery disease [Not Recovered/Not Resolved]
  - Glaucoma [Not Recovered/Not Resolved]
  - Auditory nerve disorder [Unknown]
  - Optic nerve injury [Unknown]
  - Haemorrhage intracranial [Unknown]
  - Fall [Unknown]
  - Malaise [Unknown]
  - Balance disorder [Recovered/Resolved]
  - Blood pressure fluctuation [Recovering/Resolving]
  - Retinal migraine [Unknown]
  - Prostatic disorder [Not Recovered/Not Resolved]
  - Hypertension [Recovering/Resolving]
  - Dizziness [Recovered/Resolved]
  - Inappropriate schedule of product administration [Not Recovered/Not Resolved]
